FAERS Safety Report 24202840 (Version 2)
Quarter: 2024Q3

REPORT INFORMATION
  Report Type: Spontaneous
  Country: US (occurrence: US)
  Receive Date: 20240813
  Receipt Date: 20240829
  Transmission Date: 20241016
  Serious: No
  Sender: ROCHE
  Company Number: US-ROCHE-10000050793

PATIENT
  Age: 71 Year
  Sex: Male
  Weight: 81.64 kg

DRUGS (3)
  1. ACTEMRA [Suspect]
     Active Substance: TOCILIZUMAB
     Indication: Arthritis
     Dosage: .09ML
     Route: 058
     Dates: start: 202407
  2. ACTEMRA [Suspect]
     Active Substance: TOCILIZUMAB
     Indication: Rheumatoid arthritis
  3. METHOTREXATE [Concomitant]
     Active Substance: METHOTREXATE
     Dates: start: 202305

REACTIONS (4)
  - Urticaria [Not Recovered/Not Resolved]
  - Off label use [Unknown]
  - Device defective [Unknown]
  - Exposure via skin contact [Unknown]

NARRATIVE: CASE EVENT DATE: 20240701
